FAERS Safety Report 8382873-3 (Version None)
Quarter: 2012Q2

REPORT INFORMATION
  Report Type: 
  Country: None (occurrence: None)
  Receive Date: 20120524
  Receipt Date: 20120514
  Transmission Date: 20120825
  Serious: Yes (Death)
  Sender: FDA-Public Use
  Company Number: US-JNJFOC-20120512977

PATIENT
  Age: 62 Year
  Sex: Male

DRUGS (2)
  1. CLADRIBINE [Suspect]
     Indication: LYMPHOMA
     Dosage: FIRST CYCLE
     Route: 065
  2. CLADRIBINE [Suspect]
     Indication: WALDENSTROM'S MACROGLOBULINAEMIA
     Dosage: FIRST CYCLE
     Route: 065

REACTIONS (3)
  - SEPSIS [None]
  - MYASTHENIA GRAVIS [None]
  - CARDIAC FAILURE [None]
